FAERS Safety Report 8282118-9 (Version None)
Quarter: 2012Q2

REPORT INFORMATION
  Report Type: 
  Country: None (occurrence: None)
  Receive Date: 20120413
  Receipt Date: 20120411
  Transmission Date: 20120825
  Serious: Yes (Hospitalization)
  Sender: FDA-Public Use
  Company Number: FR-BRISTOL-MYERS SQUIBB COMPANY-16456048

PATIENT
  Age: 55 Year
  Sex: Female

DRUGS (3)
  1. TRUVADA [Suspect]
     Indication: HIV INFECTION
     Dates: start: 20051122, end: 20120125
  2. NORVIR [Suspect]
     Indication: HIV INFECTION
     Dates: start: 20051122
  3. REYATAZ [Suspect]
     Indication: HIV INFECTION
     Dates: start: 20051122, end: 20120125

REACTIONS (1)
  - RENAL FAILURE ACUTE [None]
